FAERS Safety Report 24654755 (Version 1)
Quarter: 2024Q4

REPORT INFORMATION
  Report Type: Report from Study
  Country: US (occurrence: US)
  Receive Date: 20241122
  Receipt Date: 20241122
  Transmission Date: 20250115
  Serious: Yes (Hospitalization, Other)
  Sender: ALEXION PHARMACEUTICALS
  Company Number: US-AstraZeneca-CH-00742477A

PATIENT
  Age: 12 Year
  Weight: 46.4 kg

DRUGS (24)
  1. SELUMETINIB [Suspect]
     Active Substance: SELUMETINIB
     Indication: Neurofibromatosis
     Dosage: 10 MILLIGRAM, BID (10 AND 25 MG PER DAY)
  2. SELUMETINIB [Suspect]
     Active Substance: SELUMETINIB
     Dosage: 10 MILLIGRAM, BID (10 AND 25 MG PER DAY)
  3. SELUMETINIB [Suspect]
     Active Substance: SELUMETINIB
     Dosage: 10 MILLIGRAM, BID (10 AND 25 MG PER DAY)
  4. SELUMETINIB [Suspect]
     Active Substance: SELUMETINIB
     Dosage: 10 MILLIGRAM, BID (10 AND 25 MG PER DAY)
  5. SELUMETINIB [Suspect]
     Active Substance: SELUMETINIB
     Dosage: 40 MILLIGRAM, BID
  6. SELUMETINIB [Suspect]
     Active Substance: SELUMETINIB
     Dosage: 40 MILLIGRAM, BID
  7. SELUMETINIB [Suspect]
     Active Substance: SELUMETINIB
     Dosage: 40 MILLIGRAM, BID
  8. SELUMETINIB [Suspect]
     Active Substance: SELUMETINIB
     Dosage: 40 MILLIGRAM, BID
  9. AQUAPHOR [Concomitant]
     Active Substance: PETROLATUM
     Indication: Lip dry
     Dosage: APPLY TO AFFECTED AREA UNK, PRN
  10. AQUAPHOR [Concomitant]
     Active Substance: PETROLATUM
     Dosage: APPLY TO AFFECTED AREA UNK, PRN
  11. AQUAPHOR [Concomitant]
     Active Substance: PETROLATUM
     Dosage: APPLY TO AFFECTED AREA UNK, PRN
  12. AQUAPHOR [Concomitant]
     Active Substance: PETROLATUM
     Dosage: APPLY TO AFFECTED AREA UNK, PRN
  13. NIZORAL [Concomitant]
     Active Substance: KETOCONAZOLE
     Indication: Dry skin
     Dosage: UNK APPLY EVERY MONDAY AND THURSDAY
  14. NIZORAL [Concomitant]
     Active Substance: KETOCONAZOLE
     Indication: Papule
     Dosage: UNK APPLY EVERY MONDAY AND THURSDAY
  15. NIZORAL [Concomitant]
     Active Substance: KETOCONAZOLE
     Indication: Pustule
     Dosage: UNK APPLY EVERY MONDAY AND THURSDAY
  16. NIZORAL [Concomitant]
     Active Substance: KETOCONAZOLE
     Dosage: UNK APPLY EVERY MONDAY AND THURSDAY
  17. NIZORAL [Concomitant]
     Active Substance: KETOCONAZOLE
     Dosage: UNK, CREAM, APPLY TO AFFECTED AREA EVERY EVENING MIX WITH BACTROBAN - AFFECTED AREA
  18. NIZORAL [Concomitant]
     Active Substance: KETOCONAZOLE
     Dosage: UNK, CREAM, APPLY TO AFFECTED AREA EVERY EVENING MIX WITH BACTROBAN - AFFECTED AREA
  19. NIZORAL [Concomitant]
     Active Substance: KETOCONAZOLE
     Dosage: UNK, CREAM, APPLY TO AFFECTED AREA EVERY EVENING MIX WITH BACTROBAN - AFFECTED AREA
  20. NIZORAL [Concomitant]
     Active Substance: KETOCONAZOLE
     Dosage: UNK, CREAM, APPLY TO AFFECTED AREA EVERY EVENING MIX WITH BACTROBAN - AFFECTED AREA
  21. ZOFRAN [Concomitant]
     Active Substance: ONDANSETRON HYDROCHLORIDE
     Indication: Nausea
     Dosage: 0.5 TABLETS, 4 MILLIGRAM, Q8H, PRN
  22. ZOFRAN [Concomitant]
     Active Substance: ONDANSETRON HYDROCHLORIDE
     Dosage: 0.5 TABLETS, 4 MILLIGRAM, Q8H, PRN
  23. ZOFRAN [Concomitant]
     Active Substance: ONDANSETRON HYDROCHLORIDE
     Dosage: 0.5 TABLETS, 4 MILLIGRAM, Q8H, PRN
  24. ZOFRAN [Concomitant]
     Active Substance: ONDANSETRON HYDROCHLORIDE
     Dosage: 0.5 TABLETS, 4 MILLIGRAM, Q8H, PRN

REACTIONS (3)
  - Haematoma infection [Unknown]
  - Myositis [Unknown]
  - Bone metabolism disorder [Unknown]
